FAERS Safety Report 6178144-6 (Version None)
Quarter: 2009Q2

REPORT INFORMATION
  Report Type: 
  Country: None (occurrence: None)
  Receive Date: 20090504
  Receipt Date: 20090428
  Transmission Date: 20091009
  Serious: Yes (Death, Other)
  Sender: FDA-Public Use
  Company Number: FR-ELI_LILLY_AND_COMPANY-FR200904006853

PATIENT
  Sex: Male
  Weight: 69 kg

DRUGS (8)
  1. DROTRECOGIN ALFA (ACTIVATED) [Suspect]
     Indication: SEPTIC SHOCK
     Dosage: 0.024 MG/KG, EVERY HOUR
     Route: 042
     Dates: start: 20090217, end: 20090219
  2. HYPNOVEL [Concomitant]
     Indication: SEDATION
     Dates: start: 20090216, end: 20090217
  3. NIMBEX [Concomitant]
     Indication: SEDATION
     Dates: start: 20090216, end: 20090216
  4. SUFENTA PRESERVATIVE FREE [Concomitant]
     Indication: SEDATION
     Dates: start: 20090216
  5. HUMULIN /00646001/ [Concomitant]
     Indication: HYPERGLYCAEMIA
     Dates: start: 20090216
  6. NORADRENALINE [Concomitant]
  7. INVANZ [Concomitant]
     Indication: ESCHERICHIA INFECTION
  8. TAVANIC [Concomitant]
     Indication: PNEUMOCOCCAL INFECTION

REACTIONS (2)
  - MULTI-ORGAN FAILURE [None]
  - THROMBOCYTOPENIA [None]
